FAERS Safety Report 8347364-4 (Version None)
Quarter: 2012Q2

REPORT INFORMATION
  Report Type: 
  Country: None (occurrence: None)
  Receive Date: 20120509
  Receipt Date: 20120426
  Transmission Date: 20120825
  Serious: Yes (Death)
  Sender: FDA-Public Use
  Company Number: AU-ROCHE-1042846

PATIENT
  Sex: Female
  Weight: 66 kg

DRUGS (3)
  1. AVASTIN [Suspect]
     Indication: COLON CANCER METASTATIC
     Route: 042
     Dates: start: 20111004, end: 20111213
  2. FLUOROURACIL [Concomitant]
     Dates: start: 20110901
  3. OXALIPLATIN [Concomitant]
     Dates: start: 20110901

REACTIONS (1)
  - INTESTINAL PERFORATION [None]
